FAERS Safety Report 18393182 (Version 1)
Quarter: 2020Q4

REPORT INFORMATION
  Report Type: Spontaneous
  Country: US (occurrence: US)
  Receive Date: 20201016
  Receipt Date: 20201016
  Transmission Date: 20210114
  Serious: No
  Sender: FDA-Public Use
  Company Number: US-JNJFOC-20201016505

PATIENT
  Age: 50 Year
  Sex: Female

DRUGS (3)
  1. INVEGA TRINZA [Suspect]
     Active Substance: PALIPERIDONE PALMITATE
     Dosage: NOT 156MG AND THEN GIVING ANOTHER DOSE BUT OF 156MG 4 DAYS AFTER GIVING THE SECOND DOSE, THE 117MG D
     Route: 030
     Dates: start: 20201005
  2. INVEGA TRINZA [Suspect]
     Active Substance: PALIPERIDONE PALMITATE
     Indication: PSYCHOTIC DISORDER
     Route: 030
     Dates: start: 20201001
  3. INVEGA TRINZA [Suspect]
     Active Substance: PALIPERIDONE PALMITATE
     Dosage: NOT 156MG AND THEN GIVING ANOTHER DOSE BUT OF 156MG 4 DAYS AFTER GIVING THE SECOND DOSE, THE 117MG D
     Route: 030

REACTIONS (2)
  - Product use in unapproved indication [Unknown]
  - Off label use [Unknown]

NARRATIVE: CASE EVENT DATE: 20201001
